FAERS Safety Report 18931791 (Version 1)
Quarter: 2021Q1

REPORT INFORMATION
  Report Type: Report from Study
  Country: US (occurrence: US)
  Receive Date: 20210224
  Receipt Date: 20210224
  Transmission Date: 20210420
  Serious: Yes (Other)
  Sender: FDA-Public Use
  Company Number: US-BIOVITRUM-2020US6302

PATIENT
  Age: 36 Year
  Sex: Male

DRUGS (7)
  1. KINERET [Suspect]
     Active Substance: ANAKINRA
     Indication: PERICARDITIS
     Route: 058
     Dates: start: 20201130
  2. OMEPRAZOLE. [Concomitant]
     Active Substance: OMEPRAZOLE
  3. ALENDRONATE [Concomitant]
     Active Substance: ALENDRONATE SODIUM
  4. KINERET [Suspect]
     Active Substance: ANAKINRA
     Indication: PERICARDIAL DISEASE
     Route: 058
     Dates: start: 20201103
  5. KINERET [Suspect]
     Active Substance: ANAKINRA
     Route: 058
     Dates: start: 20201104
  6. PREDNISONE. [Concomitant]
     Active Substance: PREDNISONE
  7. COLCHICINE. [Concomitant]
     Active Substance: COLCHICINE

REACTIONS (10)
  - Pain [Unknown]
  - Pyrexia [Unknown]
  - Abdominal pain lower [Unknown]
  - Incorrect dose administered [Unknown]
  - Abscess neck [Unknown]
  - Injection site pain [Unknown]
  - Dyspnoea [Unknown]
  - Off label use [Unknown]
  - Inflammation [Recovering/Resolving]
  - Cellulitis [Unknown]

NARRATIVE: CASE EVENT DATE: 20201130
